FAERS Safety Report 15979386 (Version 1)
Quarter: 2019Q1

REPORT INFORMATION
  Report Type: Spontaneous
  Country: US (occurrence: US)
  Receive Date: 20190217
  Receipt Date: 20190217
  Transmission Date: 20190418
  Serious: Yes (Hospitalization)
  Sender: FDA-Public Use
  Company Number: None

PATIENT
  Age: 63 Year
  Sex: Female

DRUGS (2)
  1. PROLIA [Suspect]
     Active Substance: DENOSUMAB
     Indication: OSTEOPOROSIS
     Dosage: ?          OTHER FREQUENCY:EVERY 6 MONTHS;?
     Route: 058
     Dates: start: 20180605
  2. PROLIA [Concomitant]
     Active Substance: DENOSUMAB
     Dates: start: 20180605

REACTIONS (2)
  - Amnesia [None]
  - Abnormal behaviour [None]

NARRATIVE: CASE EVENT DATE: 20181222
